FAERS Safety Report 8605831-X (Version None)
Quarter: 2012Q3

REPORT INFORMATION
  Report Type: 
  Country: None (occurrence: None)
  Receive Date: 20120820
  Receipt Date: 20120808
  Transmission Date: 20120928
  Serious: Yes (Congenital Anomaly)
  Sender: FDA-Public Use
  Company Number: US-GLAXOSMITHKLINE-A0989957A

PATIENT
  Sex: Male

DRUGS (1)
  1. PAXIL [Suspect]
     Indication: PRODUCT USED FOR UNKNOWN INDICATION
     Dosage: 20MG UNKNOWN
     Route: 064

REACTIONS (7)
  - MILD MENTAL RETARDATION [None]
  - SPEECH DISORDER DEVELOPMENTAL [None]
  - CONGENITAL CENTRAL NERVOUS SYSTEM ANOMALY [None]
  - FOETAL EXPOSURE DURING PREGNANCY [None]
  - CONVULSION [None]
  - ATTENTION DEFICIT/HYPERACTIVITY DISORDER [None]
  - ENCEPHALOPATHY [None]
